FAERS Safety Report 25202944 (Version 4)
Quarter: 2025Q3

REPORT INFORMATION
  Report Type: Report from Study
  Country: EU (occurrence: EU)
  Receive Date: 20250416
  Receipt Date: 20250810
  Transmission Date: 20251020
  Serious: Yes (Death, Hospitalization, Other)
  Sender: ALEXION PHARMACEUTICALS
  Company Number: EU-AstraZeneca-CH-00848722A

PATIENT
  Age: 49 Year
  Sex: Female
  Weight: 47 kg

DRUGS (3)
  1. DANICOPAN [Suspect]
     Active Substance: DANICOPAN
     Indication: Paroxysmal nocturnal haemoglobinuria
     Dosage: 450 MILLIGRAM, TID
     Route: 065
     Dates: start: 20241205, end: 20250414
  2. ULTOMIRIS [Suspect]
     Active Substance: RAVULIZUMAB-CWVZ
     Indication: Paroxysmal nocturnal haemoglobinuria
  3. ULTOMIRIS [Suspect]
     Active Substance: RAVULIZUMAB-CWVZ

REACTIONS (8)
  - Cardiac arrest [Fatal]
  - Metabolic acidosis [Fatal]
  - Septic shock [Fatal]
  - Meningococcal infection [Fatal]
  - Hypotension [Fatal]
  - Anaemia [Fatal]
  - Thrombocytopenia [Fatal]
  - Multiple organ dysfunction syndrome [Fatal]

NARRATIVE: CASE EVENT DATE: 20250413
